FAERS Safety Report 8379163-1 (Version None)
Quarter: 2012Q1

REPORT INFORMATION
  Report Type: 
  Country: None (occurrence: None)
  Receive Date: 20120323
  Receipt Date: 20110317
  Transmission Date: 20120608
  Serious: Yes (Hospitalization)
  Sender: FDA-Public Use
  Company Number: 163-21880-11032165

PATIENT
  Sex: Male
  Weight: 90 kg

DRUGS (3)
  1. REVLIMID [Suspect]
     Indication: MULTIPLE MYELOMA
     Dosage: 5 MG, 1 IN 1 D, PO, 10 MG, 1 IN 1 D, PO, 5 MG, DAILY FOR 21 DAYS 7 DAYS OFF, PO
     Route: 048
     Dates: start: 20090901
  2. REVLIMID [Suspect]
     Indication: MULTIPLE MYELOMA
     Dosage: 5 MG, 1 IN 1 D, PO, 10 MG, 1 IN 1 D, PO, 5 MG, DAILY FOR 21 DAYS 7 DAYS OFF, PO
     Route: 048
     Dates: start: 20101001
  3. REVLIMID [Suspect]
     Indication: MULTIPLE MYELOMA
     Dosage: 5 MG, 1 IN 1 D, PO, 10 MG, 1 IN 1 D, PO, 5 MG, DAILY FOR 21 DAYS 7 DAYS OFF, PO
     Route: 048
     Dates: start: 20100101

REACTIONS (1)
  - PNEUMONIA [None]
